FAERS Safety Report 5516527-5 (Version None)
Quarter: 2007Q4

REPORT INFORMATION
  Report Type: 
  Country: None (occurrence: None)
  Receive Date: 20071114
  Receipt Date: 20070313
  Transmission Date: 20080405
  Serious: No
  Sender: FDA-Public Use
  Company Number: A0642800A

PATIENT
  Age: 31 Year
  Sex: Female

DRUGS (1)
  1. COMMIT [Suspect]
     Dates: start: 20070311, end: 20070311

REACTIONS (4)
  - DYSPNOEA [None]
  - HEART RATE INCREASED [None]
  - MALAISE [None]
  - VOMITING [None]
